FAERS Safety Report 4322981-7 (Version None)
Quarter: 2004Q1

REPORT INFORMATION
  Report Type: 
  Country: None (occurrence: None)
  Receive Date: 20040322
  Receipt Date: 20040310
  Transmission Date: 20041129
  Serious: Yes (Hospitalization)
  Sender: FDA-Public Use
  Company Number: US069184

PATIENT
  Age: 60 Year
  Sex: Male
  Weight: 63.6 kg

DRUGS (4)
  1. PROCRIT [Suspect]
     Indication: ANAEMIA
     Dates: start: 20000101, end: 20000201
  2. ALPRAZOLAM [Concomitant]
  3. VENLAFAXINE HCL [Concomitant]
  4. GABAPENTIN [Concomitant]

REACTIONS (3)
  - JAW FRACTURE [None]
  - MYOCARDIAL INFARCTION [None]
  - SEPSIS [None]
